FAERS Safety Report 5633835-8 (Version None)
Quarter: 2008Q1

REPORT INFORMATION
  Report Type: 
  Country: None (occurrence: None)
  Receive Date: 20080219
  Receipt Date: 20080208
  Transmission Date: 20080703
  Serious: Yes (Other)
  Sender: FDA-Public Use
  Company Number: 2008US000311

PATIENT
  Age: 34 Year
  Sex: Female

DRUGS (7)
  1. PROGRAF [Suspect]
     Indication: RENAL TRANSPLANT
     Dosage: 2 DF, BID, ORAL
     Route: 048
  2. CELLCEPT [Concomitant]
  3. PREDNISOLONE [Concomitant]
  4. NIFEDIPINE [Concomitant]
  5. ASPIRIN [Concomitant]
  6. CALCIUM (CALCIUM) [Concomitant]
  7. LYRICA [Concomitant]

REACTIONS (3)
  - FINGER DEFORMITY [None]
  - PARAESTHESIA [None]
  - SENSORY LOSS [None]
